FAERS Safety Report 25807505 (Version 1)
Quarter: 2025Q3

REPORT INFORMATION
  Report Type: Spontaneous
  Country: US (occurrence: US)
  Receive Date: 20250916
  Receipt Date: 20250916
  Transmission Date: 20251021
  Serious: No
  Sender: BOEHRINGER INGELHEIM
  Company Number: US-Komodo Health-a23aa00000A8AcLAAV

PATIENT
  Age: 77 Year
  Sex: Female

DRUGS (2)
  1. ATROVENT HFA [Suspect]
     Active Substance: IPRATROPIUM BROMIDE
     Indication: Chronic obstructive pulmonary disease
  2. DOXYCYCLINE [Concomitant]
     Active Substance: DOXYCYCLINE

REACTIONS (6)
  - Cataract [Unknown]
  - Respiratory tract congestion [Not Recovered/Not Resolved]
  - Cough [Not Recovered/Not Resolved]
  - Drug ineffective [Unknown]
  - Off label use [Unknown]
  - Influenza [Unknown]

NARRATIVE: CASE EVENT DATE: 20250101
